FAERS Safety Report 16260362 (Version 1)
Quarter: 2019Q2

REPORT INFORMATION
  Report Type: Spontaneous
  Country: US (occurrence: US)
  Receive Date: 20190326
  Receipt Date: 20190326
  Transmission Date: 20190711
  Serious: Yes (Death, Hospitalization)
  Sender: FDA-Public Use
  Company Number: None

PATIENT
  Age: 76 Year
  Sex: Female
  Weight: 83 kg

DRUGS (1)
  1. DECITABINE (5-AZA-2^-DEOXYCYTIDINE) [Suspect]
     Active Substance: DECITABINE
     Dosage: ?          OTHER DOSE:38.4MG;?
     Dates: end: 20190319

REACTIONS (23)
  - Alanine aminotransferase increased [None]
  - Agitation [None]
  - Abdominal pain [None]
  - Urine output decreased [None]
  - Blood creatinine increased [None]
  - General physical health deterioration [None]
  - International normalised ratio increased [None]
  - Aspartate aminotransferase increased [None]
  - Dialysis [None]
  - Blood calcium decreased [None]
  - Dyspnoea [None]
  - Blood urea increased [None]
  - Mood altered [None]
  - Blood uric acid increased [None]
  - Blood bilirubin increased [None]
  - Prothrombin time prolonged [None]
  - Activated partial thromboplastin time prolonged [None]
  - Fibrin D dimer increased [None]
  - Blood potassium increased [None]
  - Blood phosphorus increased [None]
  - White blood cell count increased [None]
  - Antineutrophil cytoplasmic antibody increased [None]
  - Tumour lysis syndrome [None]

NARRATIVE: CASE EVENT DATE: 20190320
